FAERS Safety Report 16763907 (Version 3)
Quarter: 2019Q4

REPORT INFORMATION
  Report Type: Spontaneous
  Country: JP (occurrence: JP)
  Receive Date: 20190902
  Receipt Date: 20191014
  Transmission Date: 20200122
  Serious: Yes (Hospitalization)
  Sender: FDA-Public Use
  Company Number: JP-TEVA-2019-JP-005609J

PATIENT
  Age: 91 Year
  Sex: Male

DRUGS (13)
  1. THEOLONG [Concomitant]
     Active Substance: THEOPHYLLINE ANHYDROUS
     Dosage: 400 MILLIGRAM DAILY;
     Route: 048
  2. FEBURIC [Concomitant]
     Active Substance: FEBUXOSTAT
     Dosage: 40 MILLIGRAM DAILY;
     Route: 048
  3. ACTOS [Suspect]
     Active Substance: PIOGLITAZONE HYDROCHLORIDE
     Indication: TYPE 2 DIABETES MELLITUS
     Dosage: 15 MILLIGRAM DAILY;
     Route: 048
     Dates: start: 201812, end: 20190604
  4. DIGOSIN [Concomitant]
     Active Substance: DIGOXIN
     Dosage: .125 MILLIGRAM DAILY;
     Route: 048
  5. ALOSENN [Concomitant]
     Dosage: 2 GRAM DAILY;
     Route: 048
  6. C-CYSTEN [Concomitant]
     Active Substance: CARBOCYSTEINE
     Dosage: 4500 MILLIGRAM DAILY;
     Route: 048
  7. SULPIRIDE [Concomitant]
     Active Substance: SULPIRIDE
     Dosage: 25 MILLIGRAM DAILY;
     Route: 048
  8. EPADEL [Concomitant]
     Active Substance: ICOSAPENT
     Route: 048
  9. CARVEDILOL. [Concomitant]
     Active Substance: CARVEDILOL
     Dosage: 2.5 MILLIGRAM DAILY;
     Route: 048
  10. BELSOMRA [Concomitant]
     Active Substance: SUVOREXANT
     Dosage: 30 MILLIGRAM DAILY;
     Route: 048
  11. CELESTAMINE [Concomitant]
     Active Substance: BETAMETHASONE\DEXCHLORPHENIRAMINE MALEATE
     Dosage: 4 DOSAGE FORMS DAILY;
     Route: 048
  12. LIPIDIL [Concomitant]
     Active Substance: FENOFIBRATE
     Route: 048
  13. URIEF [Concomitant]
     Active Substance: SILODOSIN
     Dosage: 16 MILLIGRAM DAILY;
     Route: 048

REACTIONS (1)
  - Nephrotic syndrome [Unknown]

NARRATIVE: CASE EVENT DATE: 20190903
